FAERS Safety Report 6965208-X (Version None)
Quarter: 2010Q3

REPORT INFORMATION
  Report Type: 
  Country: None (occurrence: None)
  Receive Date: 20100903
  Receipt Date: 20100828
  Transmission Date: 20110219
  Serious: Yes (Hospitalization)
  Sender: FDA-Public Use
  Company Number: GB-AMGEN-KDC435002

PATIENT
  Sex: Male

DRUGS (18)
  1. VECTIBIX [Suspect]
     Indication: GASTROOESOPHAGEAL CANCER
     Dates: start: 20100317
  2. EPIRUBICIN [Suspect]
     Dates: start: 20100317
  3. OXALIPLATIN [Suspect]
     Dates: start: 20100317
  4. CAPECITABINE [Suspect]
     Dates: start: 20100317
  5. TPN [Concomitant]
     Dates: start: 20100401
  6. ENSURE [Concomitant]
     Dates: start: 20100301
  7. BUPRENORPHINE [Concomitant]
     Dates: start: 20100401
  8. CO-DANTHRUSATE [Concomitant]
     Dates: start: 20100301
  9. CHLORPROMAZINE [Concomitant]
     Route: 048
     Dates: start: 20100401
  10. PANTOPRAZOLE [Concomitant]
     Route: 048
     Dates: start: 20100322
  11. CYCLIZINE [Concomitant]
     Route: 048
     Dates: start: 20100401
  12. ONDANSETRON [Concomitant]
     Dates: start: 20100317
  13. DEXAMETHASONE [Concomitant]
     Route: 048
     Dates: start: 20100317
  14. GAVISCON [Concomitant]
     Dates: start: 20100427
  15. IMODIUM [Concomitant]
     Dates: start: 20100401
  16. DOXYCYCLINE [Concomitant]
     Route: 048
     Dates: start: 20100407
  17. MAGNESIUM ASPARTATE [Concomitant]
     Dates: start: 20100427
  18. EMOLLIENTS AND PROTECTIVES [Concomitant]

REACTIONS (3)
  - INFECTION [None]
  - NAUSEA [None]
  - VOMITING [None]
